FAERS Safety Report 7258379-1 (Version None)
Quarter: 2011Q1

REPORT INFORMATION
  Report Type: 
  Country: None (occurrence: None)
  Receive Date: 20110129
  Receipt Date: 20100709
  Transmission Date: 20110831
  Serious: No
  Sender: FDA-Public Use
  Company Number: US-ABBOTT-10P-163-0656345-00

PATIENT
  Sex: Female
  Weight: 54.48 kg

DRUGS (5)
  1. HUMIRA [Suspect]
  2. METHOTREXATE [Concomitant]
     Indication: RHEUMATOID ARTHRITIS
  3. ACTONEL [Concomitant]
     Indication: OSTEOPOROSIS
  4. HUMIRA [Suspect]
     Indication: RHEUMATOID ARTHRITIS
     Dates: start: 20080101
  5. HUMIRA [Suspect]
     Indication: RHEUMATOID ARTHRITIS
     Dates: start: 20100601

REACTIONS (6)
  - DEVICE MALFUNCTION [None]
  - PAIN [None]
  - SINUSITIS [None]
  - DRUG INEFFECTIVE [None]
  - INFLAMMATION [None]
  - RHEUMATOID ARTHRITIS [None]
